FAERS Safety Report 7245887-2 (Version None)
Quarter: 2011Q1

REPORT INFORMATION
  Report Type: 
  Country: None (occurrence: None)
  Receive Date: 20110126
  Receipt Date: 20110121
  Transmission Date: 20110831
  Serious: Yes (Other)
  Sender: FDA-Public Use
  Company Number: US-B.I. PHARMACEUTICALS,INC./RIDGEFIELD-2011-BP-01419BP

PATIENT
  Sex: Female

DRUGS (3)
  1. CHEMO REGIMEN [Concomitant]
     Indication: LUNG NEOPLASM MALIGNANT
  2. DULCOLAX [Suspect]
     Indication: CONSTIPATION
     Dosage: 200 MG
     Route: 048
     Dates: start: 20110119
  3. CHEMO REGIMEN [Concomitant]
     Indication: OVARIAN CANCER

REACTIONS (5)
  - CHEST PAIN [None]
  - NECK PAIN [None]
  - DRUG INEFFECTIVE [None]
  - FAECES HARD [None]
  - MUSCULOSKELETAL PAIN [None]
